FAERS Safety Report 10757012 (Version 1)
Quarter: 2015Q1

REPORT INFORMATION
  Report Type: Spontaneous
  Country: DE (occurrence: DE)
  Receive Date: 20150203
  Receipt Date: 20150203
  Transmission Date: 20150721
  Serious: Yes (Other)
  Sender: FDA-Public Use
  Company Number: DE-RANBAXY-2012R1-91159

PATIENT
  Age: 30 Year
  Sex: Female

DRUGS (6)
  1. PANTOZOLE [Suspect]
     Active Substance: PANTOPRAZOLE SODIUM
     Indication: PRODUCT USED FOR UNKNOWN INDICATION
     Dosage: UNK
     Route: 065
     Dates: start: 20110221, end: 20110223
  2. HERBAL NOS [Suspect]
     Active Substance: HERBALS
     Indication: NASOPHARYNGITIS
     Dosage: 3X30 DROPS DAILY
     Route: 065
     Dates: start: 20110223, end: 20110225
  3. IBUPROFEN. [Suspect]
     Active Substance: IBUPROFEN
     Indication: PRODUCT USED FOR UNKNOWN INDICATION
     Dosage: UNK
     Route: 065
     Dates: start: 20110221, end: 20110223
  4. HERBAL NOS [Suspect]
     Active Substance: HERBALS
     Indication: NASOPHARYNGITIS
     Dosage: 15 DROPS
     Route: 065
     Dates: start: 20110226
  5. HERBAL NOS [Suspect]
     Active Substance: HERBALS
     Dosage: UNK
  6. METHYLDOPA. [Concomitant]
     Active Substance: METHYLDOPA
     Indication: HYPERTENSION
     Route: 065

REACTIONS (1)
  - Liver injury [Recovering/Resolving]
